FAERS Safety Report 6086791-5 (Version None)
Quarter: 2009Q1

REPORT INFORMATION
  Report Type: 
  Country: None (occurrence: None)
  Receive Date: 20090223
  Receipt Date: 20090216
  Transmission Date: 20090719
  Serious: Yes (Hospitalization)
  Sender: FDA-Public Use
  Company Number: FR-PURDUE-GBR_2009_0004874

PATIENT
  Age: 94 Year
  Sex: Male

DRUGS (11)
  1. OXYNORM CAPSULES 5 MG [Suspect]
     Indication: PAIN
     Dosage: 5 MG, PRN
     Route: 048
     Dates: start: 20090103, end: 20090121
  2. TOPALGIC LP [Suspect]
     Indication: PAIN
     Dosage: 2 DF, DAILY
     Route: 048
     Dates: start: 20090103, end: 20090121
  3. DECAPEPTYL                         /00975902/ [Concomitant]
     Indication: NEOPLASM PROSTATE
     Dosage: 1 DOSE EVERY 3 MONTHS
     Route: 042
     Dates: start: 20090103
  4. CASODEX [Concomitant]
     Indication: NEOPLASM PROSTATE
     Dosage: 1 DF, DAILY
     Route: 048
     Dates: start: 20090103
  5. ALLOPURINOL [Concomitant]
     Dosage: 1 DF, DAILY
     Route: 048
     Dates: start: 20090103
  6. DOLIPRANE [Concomitant]
     Indication: PAIN
     Dosage: 1000 MG, BID
     Route: 048
     Dates: start: 20090114, end: 20090117
  7. TARDYFERON                         /01675201/ [Concomitant]
     Indication: ANAEMIA
     Dosage: UNK, BID
     Route: 048
     Dates: start: 20090103
  8. SYMBICORT [Concomitant]
     Dosage: 1 DF, QID
     Route: 055
     Dates: start: 20090103
  9. LOVENOX [Concomitant]
     Dosage: .7 ML, DAILY
     Route: 058
     Dates: start: 20090101
  10. FUROSEMID                          /00032601/ [Concomitant]
     Indication: DIURETIC THERAPY
     Route: 065
     Dates: end: 20090115
  11. ALDACTONE [Concomitant]
     Indication: DIURETIC THERAPY
     Dosage: UNK, UNK
     Route: 065
     Dates: end: 20090115

REACTIONS (3)
  - HYPONATRAEMIA [None]
  - MALAISE [None]
  - VOMITING [None]
